FAERS Safety Report 19063439 (Version 4)
Quarter: 2023Q1

REPORT INFORMATION
  Report Type: Spontaneous
  Country: BR (occurrence: BR)
  Receive Date: 20210326
  Receipt Date: 20230316
  Transmission Date: 20230417
  Serious: Yes (Other)
  Sender: FDA-Public Use
  Company Number: BR-TORRENT-00005561

PATIENT
  Age: 30 Year
  Sex: Female
  Weight: 57 kg

DRUGS (1)
  1. SERTRALINE HYDROCHLORIDE [Suspect]
     Active Substance: SERTRALINE HYDROCHLORIDE
     Indication: Panic reaction
     Route: 048
     Dates: start: 20210314

REACTIONS (12)
  - Insomnia [Not Recovered/Not Resolved]
  - Nausea [Not Recovered/Not Resolved]
  - Malaise [Not Recovered/Not Resolved]
  - Diarrhoea [Recovered/Resolved]
  - Feeling abnormal [Not Recovered/Not Resolved]
  - Fear of death [Not Recovered/Not Resolved]
  - Feeling hot [Unknown]
  - Chills [Unknown]
  - Asthenia [Unknown]
  - Dyspnoea [Unknown]
  - Anxiety [Unknown]
  - Syncope [Unknown]

NARRATIVE: CASE EVENT DATE: 20210314
